FAERS Safety Report 17631404 (Version 1)
Quarter: 2020Q2

REPORT INFORMATION
  Report Type: Spontaneous
  Country: US (occurrence: US)
  Receive Date: 20200403
  Receipt Date: 20200403
  Transmission Date: 20200713
  Serious: Yes (Death, Hospitalization)
  Sender: FDA-Public Use
  Company Number: None

PATIENT
  Age: 71 Year
  Sex: Female

DRUGS (1)
  1. BOSENTAN 125 MG TABLETS 60/BO (TEVA): [Suspect]
     Active Substance: BOSENTAN
     Indication: PULMONARY ARTERIAL HYPERTENSION
     Route: 048
     Dates: start: 20190611, end: 20200318

REACTIONS (12)
  - Mental status changes [None]
  - Atrial fibrillation [None]
  - Bile duct obstruction [None]
  - Bradycardia [None]
  - Haemorrhage intracranial [None]
  - Cardiac arrest [None]
  - Bacteraemia [None]
  - Thrombocytopenia [None]
  - Haemophilus infection [None]
  - Hypophagia [None]
  - Encephalopathy [None]
  - Hypernatraemia [None]

NARRATIVE: CASE EVENT DATE: 20200318
